FAERS Safety Report 5296463-2 (Version None)
Quarter: 2007Q2

REPORT INFORMATION
  Report Type: 
  Country: None (occurrence: None)
  Receive Date: 20070413
  Receipt Date: 20070403
  Transmission Date: 20071010
  Serious: Yes (Hospitalization, Other)
  Sender: FDA-Public Use
  Company Number: CH-ABBOTT-07P-151-0363944-00

PATIENT
  Age: 48 Year
  Sex: Male

DRUGS (4)
  1. DEPAKENE [Suspect]
     Indication: ACUTE PSYCHOSIS
     Route: 048
     Dates: start: 20051210
  2. DEPAKENE [Suspect]
     Route: 048
  3. DEPAKENE [Suspect]
     Route: 048
  4. ZUCLOPENTHIXOL HYDROCHLORIDE [Suspect]
     Indication: ACUTE PSYCHOSIS
     Route: 048
     Dates: start: 20060102, end: 20061212

REACTIONS (3)
  - HEPATIC ENZYME INCREASED [None]
  - HEPATOCELLULAR DAMAGE [None]
  - PSYCHOTIC DISORDER [None]
